FAERS Safety Report 19211743 (Version 1)
Quarter: 2021Q2

REPORT INFORMATION
  Report Type: Spontaneous
  Country: US (occurrence: US)
  Receive Date: 20210504
  Receipt Date: 20210504
  Transmission Date: 20210717
  Serious: No
  Sender: FDA-Public Use
  Company Number: US-APOTEX-2020AP021327

PATIENT
  Sex: Female
  Weight: 59 kg

DRUGS (1)
  1. FAMOTIDINE. [Suspect]
     Active Substance: FAMOTIDINE
     Indication: COVID-19
     Dosage: 80 MILLIGRAM, TID
     Route: 065
     Dates: start: 20200421, end: 20200508

REACTIONS (4)
  - Product use in unapproved indication [Unknown]
  - Dizziness [Recovered/Resolved]
  - Heart rate increased [Recovered/Resolved]
  - Self-medication [Unknown]
